FAERS Safety Report 19462210 (Version 1)
Quarter: 2021Q2

REPORT INFORMATION
  Report Type: Spontaneous
  Country: US (occurrence: US)
  Receive Date: 20210625
  Receipt Date: 20210625
  Transmission Date: 20210717
  Serious: Yes (Other)
  Sender: FDA-Public Use
  Company Number: US-ASTELLAS-2021US015621

PATIENT
  Age: 71 Year
  Sex: Female

DRUGS (22)
  1. ZOFRAN [Concomitant]
     Active Substance: ONDANSETRON HYDROCHLORIDE
     Indication: NAUSEA
     Dosage: 8 MG, EVERY 8 HOURS (AS NEEDED)
     Route: 048
  2. COMPAZINE [Concomitant]
     Active Substance: PROCHLORPERAZINE MALEATE
     Indication: NAUSEA
     Dosage: 10 MG, EVERY 6 HOURS (AS NEEDED)
     Route: 048
  3. ZOCOR [Concomitant]
     Active Substance: SIMVASTATIN
     Indication: HYPERLIPIDAEMIA
     Route: 048
  4. PADCEV [Suspect]
     Active Substance: ENFORTUMAB VEDOTIN-EJFV
     Dosage: 1 MG/KG, CYCLIC (EVERY 4 WEEKS)
     Route: 042
     Dates: start: 20210113
  5. ZOFRAN [Concomitant]
     Active Substance: ONDANSETRON HYDROCHLORIDE
     Indication: VOMITING
  6. COMPAZINE [Concomitant]
     Active Substance: PROCHLORPERAZINE MALEATE
     Indication: VOMITING
  7. PSYLLIUM HUSK. [Concomitant]
     Active Substance: PSYLLIUM HUSK
     Indication: PRODUCT USED FOR UNKNOWN INDICATION
     Dosage: 1 DF, AT BEDTIME AS NEEDED (FIBER)
     Route: 048
  8. ZYRTEC [Concomitant]
     Active Substance: CETIRIZINE HYDROCHLORIDE
     Indication: PRODUCT USED FOR UNKNOWN INDICATION
     Route: 048
  9. PADCEV [Suspect]
     Active Substance: ENFORTUMAB VEDOTIN-EJFV
     Dosage: 1 MG/KG, CYCLIC (CYCLE 4)
     Route: 042
     Dates: end: 20200729
  10. PADCEV [Suspect]
     Active Substance: ENFORTUMAB VEDOTIN-EJFV
     Dosage: UNK UNK, CYCLIC (CYCLE 7)
     Route: 042
     Dates: end: 20201118
  11. CELEXA [Concomitant]
     Active Substance: CITALOPRAM HYDROBROMIDE
     Indication: DEPRESSION
     Route: 048
  12. NEURONTIN [Concomitant]
     Active Substance: GABAPENTIN
     Indication: PRODUCT USED FOR UNKNOWN INDICATION
     Route: 048
  13. IRON [Concomitant]
     Active Substance: IRON
     Indication: ANAEMIA
     Dosage: 1 DF (25 MG), ONCE DAILY
     Route: 048
  14. VALTREX [Concomitant]
     Active Substance: VALACYCLOVIR HYDROCHLORIDE
     Indication: GENITAL HERPES
     Route: 048
  15. VITAMIN E [Concomitant]
     Active Substance: .ALPHA.-TOCOPHEROL
     Indication: PRODUCT USED FOR UNKNOWN INDICATION
     Dosage: 400 IU, ONCE DAILY (400 IU EVERY MORNING AFTER BREAKFAST SUPPLEMENT)
     Route: 048
  16. PADCEV [Suspect]
     Active Substance: ENFORTUMAB VEDOTIN-EJFV
     Dosage: 1 MG/KG, CYCLIC (CYCLE 4)
     Route: 042
     Dates: start: 20200809
  17. PREVACID [Concomitant]
     Active Substance: LANSOPRAZOLE
     Indication: PRODUCT USED FOR UNKNOWN INDICATION
     Route: 048
  18. PADCEV [Suspect]
     Active Substance: ENFORTUMAB VEDOTIN-EJFV
     Indication: TRANSITIONAL CELL CARCINOMA METASTATIC
     Dosage: 1.25 MG/KG, CYCLIC (AT 3 WEEKS ON AND 1 WEEK OFF FOR EVERY 28 DAY CYCLE) CYCLE 1
     Route: 042
     Dates: start: 20200520
  19. VITAMIN D3 [Concomitant]
     Active Substance: CHOLECALCIFEROL
     Indication: PRODUCT USED FOR UNKNOWN INDICATION
     Dosage: 4000 IU, ONCE DAILY (4,000 UNIT CAPS AS SUPPLIMENT)
     Route: 048
  20. FLONASE [Concomitant]
     Active Substance: FLUTICASONE PROPIONATE
     Indication: HYPERSENSITIVITY
     Dosage: 2 DF, ONCE DAILY (50 MCG/ACTUATION SPSN SPRAY)
     Route: 045
  21. MELATONIN [Concomitant]
     Active Substance: MELATONIN
     Indication: SLEEP DISORDER
     Route: 048
  22. PADCEV [Suspect]
     Active Substance: ENFORTUMAB VEDOTIN-EJFV
     Dosage: 1 MG/KG, CYCLIC (AT 2 WEEKS ON AND 1 WEEK OFF FOR EVERY 21 DAY CYCLE) CYCLE 2
     Route: 042

REACTIONS (4)
  - Rash maculo-papular [Recovered/Resolved]
  - Dry eye [Recovered/Resolved]
  - Neuropathy peripheral [Recovering/Resolving]
  - Rash pruritic [Recovered/Resolved]

NARRATIVE: CASE EVENT DATE: 20200602
